FAERS Safety Report 5964160-3 (Version None)
Quarter: 2008Q4

REPORT INFORMATION
  Report Type: 
  Country: None (occurrence: None)
  Receive Date: 20081124
  Receipt Date: 20081117
  Transmission Date: 20090506
  Serious: No
  Sender: FDA-Public Use
  Company Number: US-B.I. PHARMACEUTICALS,INC./RIDGEFIELD-2008-BP-16708BP

PATIENT
  Sex: Female

DRUGS (8)
  1. SPIRIVA [Suspect]
     Indication: EMPHYSEMA
     Dosage: 18MCG
     Route: 055
     Dates: start: 20040101
  2. HOLISTIC STUFF [Concomitant]
  3. FEMHRT [Concomitant]
  4. XANAX [Concomitant]
  5. MELATONIN [Concomitant]
  6. TYLENOL (CAPLET) [Concomitant]
  7. CALCIUM WITH  D [Concomitant]
  8. MAGNESIUM SULFATE [Concomitant]

REACTIONS (6)
  - ALOPECIA [None]
  - ARTHRITIS [None]
  - DYSPNOEA [None]
  - EXERCISE TOLERANCE DECREASED [None]
  - IRRITABLE BOWEL SYNDROME [None]
  - OEDEMA PERIPHERAL [None]
